FAERS Safety Report 18046273 (Version 1)
Quarter: 2020Q3

REPORT INFORMATION
  Report Type: Spontaneous
  Country: FR (occurrence: FR)
  Receive Date: 20200720
  Receipt Date: 20200720
  Transmission Date: 20201103
  Serious: Yes (Other)
  Sender: FDA-Public Use
  Company Number: NVSC2020FR184832

PATIENT
  Age: 30 Year
  Sex: Female

DRUGS (2)
  1. RITUXIMAB. [Concomitant]
     Active Substance: RITUXIMAB
     Indication: RHEUMATOID ARTHRITIS
     Dosage: UNK
     Route: 065
  2. ADALIMUMAB [Suspect]
     Active Substance: ADALIMUMAB
     Indication: RHEUMATOID ARTHRITIS
     Dosage: UNK
     Route: 058

REACTIONS (5)
  - Lupus-like syndrome [Recovered/Resolved]
  - Rash papulosquamous [Recovered/Resolved]
  - Cutaneous lupus erythematosus [Recovered/Resolved]
  - Alopecia scarring [Recovered/Resolved]
  - Atrophy [Recovered/Resolved]
